FAERS Safety Report 8919894 (Version 2)
Quarter: 2012Q4

REPORT INFORMATION
  Report Type: Report from Study
  Country: JP (occurrence: JP)
  Receive Date: 20121121
  Receipt Date: 20121203
  Transmission Date: 20130627
  Serious: Yes (Hospitalization)
  Sender: FDA-Public Use
  Company Number: JP-MYLANLABS-2012S1023484

PATIENT
  Age: 86 Year
  Sex: Male
  Weight: 52.44 kg

DRUGS (14)
  1. EPIRUBICIN [Suspect]
     Indication: HEPATIC NEOPLASM MALIGNANT
     Route: 013
     Dates: start: 20121029, end: 20121029
  2. TSU-68 [Suspect]
     Indication: HEPATIC NEOPLASM MALIGNANT
     Route: 048
     Dates: start: 20121101
  3. OMEPRAL /00661202/ [Concomitant]
     Indication: GASTROOESOPHAGEAL REFLUX DISEASE
     Route: 048
  4. CEPHADOL [Concomitant]
     Indication: MENIERE^S DISEASE
     Route: 048
  5. MUCODYNE [Concomitant]
     Indication: BRONCHITIS CHRONIC
     Route: 048
  6. AVOLVE [Concomitant]
     Indication: BENIGN PROSTATIC HYPERPLASIA
     Route: 048
  7. URIEF [Concomitant]
     Indication: BENIGN PROSTATIC HYPERPLASIA
     Route: 048
  8. AMOBAN [Concomitant]
     Indication: INSOMNIA
     Route: 048
  9. MICARDIS [Concomitant]
     Indication: HYPERTENSION
     Route: 048
  10. BASEN [Concomitant]
     Indication: DIABETES MELLITUS
     Route: 048
  11. GLACTIV [Concomitant]
     Indication: DIABETES MELLITUS
     Route: 048
  12. LENDORMIN [Concomitant]
     Indication: INSOMNIA
     Route: 048
     Dates: start: 20121028
  13. SELBEX [Concomitant]
     Indication: PROPHYLAXIS
     Route: 048
     Dates: start: 20121029
  14. CLEITON [Concomitant]
     Indication: POST EMBOLISATION SYNDROME
     Route: 041
     Dates: start: 20121029, end: 20121101

REACTIONS (2)
  - Pyrexia [Recovered/Resolved]
  - C-reactive protein increased [Recovered/Resolved]
